FAERS Safety Report 24794192 (Version 1)
Quarter: 2024Q4

REPORT INFORMATION
  Report Type: Report from Study
  Country: US (occurrence: US)
  Receive Date: 20241231
  Receipt Date: 20241231
  Transmission Date: 20250115
  Serious: No
  Sender: BIOVITRUM
  Company Number: US-BIOVITRUM-2024-US-012977

PATIENT
  Age: 81 Year
  Sex: Female

DRUGS (1)
  1. KINERET [Suspect]
     Active Substance: ANAKINRA
     Indication: Product used for unknown indication
     Dosage: QD
     Route: 058

REACTIONS (3)
  - Fatigue [Unknown]
  - Drug ineffective [Unknown]
  - Adverse drug reaction [Unknown]
